FAERS Safety Report 13430192 (Version 1)
Quarter: 2017Q2

REPORT INFORMATION
  Report Type: Spontaneous
  Country: CN (occurrence: CN)
  Receive Date: 20170412
  Receipt Date: 20170412
  Transmission Date: 20170830
  Serious: Yes (Other)
  Sender: FDA-Public Use
  Company Number: CN-ROCHE-1919621

PATIENT
  Age: 22 Year
  Sex: Male

DRUGS (2)
  1. RANIBIZUMAB [Suspect]
     Active Substance: RANIBIZUMAB
     Indication: RETINAL VEIN OCCLUSION
     Dosage: 0.5 MG, QMO
     Route: 050
     Dates: start: 20150319, end: 201505
  2. RANIBIZUMAB [Suspect]
     Active Substance: RANIBIZUMAB
     Dosage: 0.5 MG, UNK
     Route: 050
     Dates: start: 20150618

REACTIONS (2)
  - Macular oedema [Recovered/Resolved]
  - Visual impairment [Recovering/Resolving]

NARRATIVE: CASE EVENT DATE: 20150617
